FAERS Safety Report 4613671-1 (Version None)
Quarter: 2005Q2

REPORT INFORMATION
  Report Type: 
  Country: None (occurrence: None)
  Receive Date: 20050321
  Receipt Date: 20050301
  Transmission Date: 20051028
  Serious: No
  Sender: FDA-Public Use
  Company Number: 200510688JP

PATIENT
  Age: 68 Year
  Sex: Male
  Weight: 58.4 kg

DRUGS (8)
  1. LANTUS [Suspect]
     Route: 058
     Dates: start: 20040621, end: 20050117
  2. OPTIPEN (INSULIN PUMP) [Suspect]
  3. NOVORAPID [Suspect]
     Dosage: DOSE UNIT: UNITS
     Route: 058
     Dates: start: 20040621, end: 20040715
  4. HUMALOG [Suspect]
     Dosage: DOSE: 7-3-9; DOSE UNIT: UNITS
     Route: 058
     Dates: start: 20040915, end: 20041028
  5. LASIX [Suspect]
     Route: 048
     Dates: end: 20040601
  6. ALDACTONE [Concomitant]
     Route: 048
     Dates: end: 20040604
  7. MEVALOTIN [Concomitant]
     Route: 048
     Dates: end: 20040611
  8. ASPIRIN [Concomitant]
     Route: 048
     Dates: end: 20040614

REACTIONS (1)
  - HEPATIC FUNCTION ABNORMAL [None]
